FAERS Safety Report 25518193 (Version 1)
Quarter: 2025Q3

REPORT INFORMATION
  Report Type: Report from Study
  Country: CO (occurrence: CO)
  Receive Date: 20250704
  Receipt Date: 20250704
  Transmission Date: 20251020
  Serious: Yes (Death, Hospitalization, Other)
  Sender: ASTELLAS
  Company Number: CO-ASTELLAS-2022US039601

PATIENT
  Age: 54 Year
  Sex: Male
  Weight: 73 kg

DRUGS (1)
  1. TACROLIMUS [Suspect]
     Active Substance: TACROLIMUS
     Indication: Renal transplant
     Dosage: 5 MG, ONCE DAILY
     Route: 048
     Dates: start: 20211213

REACTIONS (7)
  - Diabetic coma [Fatal]
  - Thrombosis [Fatal]
  - Disease recurrence [Fatal]
  - Bacterial infection [Fatal]
  - Fistula [Recovering/Resolving]
  - Visual impairment [Recovering/Resolving]
  - Swelling face [Recovering/Resolving]
